FAERS Safety Report 8682943 (Version 4)
Quarter: 2012Q4

REPORT INFORMATION
  Report Type: Report from Study
  Country: JP (occurrence: JP)
  Receive Date: 20120725
  Receipt Date: 20120831
  Transmission Date: 20130627
  Serious: Yes (Hospitalization)
  Sender: FDA-Public Use
  Company Number: JP-GILEAD-2012-0058759

PATIENT
  Age: 67 Year
  Sex: Female

DRUGS (22)
  1. AMBRISENTAN [Suspect]
     Indication: PULMONARY ARTERIAL HYPERTENSION
     Dosage: 7.5 UNK, UNK
     Route: 048
     Dates: start: 20110109
  2. AMBRISENTAN [Suspect]
     Dosage: 5 mg, QD
     Route: 048
     Dates: start: 20101214, end: 20110108
  3. FLOLAN [Suspect]
     Indication: PULMONARY ARTERIAL HYPERTENSION
     Dosage: 32 ng/kg/min
     Route: 042
     Dates: start: 20110210
  4. FLOLAN [Suspect]
     Dosage: 30 ng/kg/min
     Route: 042
     Dates: start: 20110205, end: 20110210
  5. FLOLAN [Suspect]
     Dosage: 28 ng/kg/min
     Route: 042
     Dates: start: 20110204, end: 20110205
  6. FLOLAN [Suspect]
     Dosage: 20 ng/kg/min
     Route: 042
     Dates: start: 20110120, end: 20110204
  7. FLOLAN [Suspect]
     Dosage: 10 ng/kg/min
     Route: 042
     Dates: start: 20101230, end: 20110120
  8. FLOLAN [Suspect]
     Dosage: 7 ng/kg/min
     Route: 042
     Dates: start: 20101220, end: 20101230
  9. FLOLAN [Suspect]
     Dosage: 5 ng/kg/min
     Route: 042
     Dates: start: 20101216, end: 20101220
  10. FLOLAN [Suspect]
     Dosage: 3 ng/kg/min
     Route: 042
     Dates: start: 20101212, end: 20101216
  11. FLOLAN [Suspect]
     Dosage: 0.6 ng/kg/min
     Route: 042
     Dates: start: 20101211, end: 20101212
  12. ADCIRCA [Suspect]
     Indication: PULMONARY ARTERIAL HYPERTENSION
     Dosage: UNK
     Route: 048
     Dates: start: 20101224
  13. DEPAS [Concomitant]
     Indication: ANXIETY
     Route: 048
     Dates: start: 20101223
  14. DEPAS [Concomitant]
     Indication: PROPHYLAXIS
  15. WARFARIN [Concomitant]
     Route: 048
     Dates: start: 20101224, end: 20110124
  16. ENTOMOL [Concomitant]
     Indication: DIARRHOEA
     Route: 048
     Dates: start: 20110127
  17. ENTOMOL [Concomitant]
     Indication: PROPHYLAXIS AGAINST DIARRHOEA
     Route: 048
     Dates: start: 20110127, end: 20110812
  18. BAKTAR [Concomitant]
     Indication: INFECTION PROPHYLAXIS
     Route: 048
     Dates: start: 20110224
  19. BONALON [Concomitant]
     Indication: OSTEOPOROSIS PROPHYLAXIS
     Route: 048
     Dates: start: 20110224
  20. GASTER [Concomitant]
     Indication: PROPHYLAXIS AGAINST GASTROINTESTINAL ULCER
     Dosage: UNK
     Route: 048
     Dates: start: 20101217
  21. GASTER [Concomitant]
     Dosage: UNK
     Route: 042
     Dates: start: 20101213, end: 20101216
  22. HEPARIN SODIUM [Concomitant]
     Indication: THROMBOSIS PROPHYLAXIS
     Route: 042
     Dates: start: 20101211, end: 20110114

REACTIONS (1)
  - Pneumonia [Recovering/Resolving]
